FAERS Safety Report 8601372-4 (Version None)
Quarter: 2012Q3

REPORT INFORMATION
  Report Type: 
  Country: None (occurrence: None)
  Receive Date: 20120817
  Receipt Date: 20120808
  Transmission Date: 20120928
  Serious: Yes (Other)
  Sender: FDA-Public Use
  Company Number: NL-BRISTOL-MYERS SQUIBB COMPANY-16845786

PATIENT
  Age: 11 Year
  Sex: Male

DRUGS (4)
  1. ABILIFY [Suspect]
     Indication: ANXIETY
     Dosage: STARTED ABILIFY 2.5MG 5-JAN-12 ABILIFY 5MG:19MAR2012
     Dates: start: 20120105
  2. ABILIFY [Suspect]
     Indication: ANGER
     Dosage: STARTED ABILIFY 2.5MG 5-JAN-12 ABILIFY 5MG:19MAR2012
     Dates: start: 20120105
  3. RITALIN [Concomitant]
     Indication: ATTENTION DEFICIT/HYPERACTIVITY DISORDER
  4. RITALIN [Concomitant]
     Indication: AUTISM SPECTRUM DISORDER

REACTIONS (1)
  - COGNITIVE DISORDER [None]
